FAERS Safety Report 19227149 (Version 8)
Quarter: 2021Q4

REPORT INFORMATION
  Report Type: Spontaneous
  Country: ZA (occurrence: ZA)
  Receive Date: 20210507
  Receipt Date: 20211024
  Transmission Date: 20220303
  Serious: Yes (Hospitalization, Other)
  Sender: FDA-Public Use
  Company Number: ZA-CELLTRION INC.-2021ZA006016

PATIENT

DRUGS (4)
  1. INFLIXIMAB [Suspect]
     Active Substance: INFLIXIMAB
     Indication: Crohn^s disease
     Dosage: 800MG/PER INFUSION
     Route: 042
     Dates: start: 20210209
  2. INFLIXIMAB [Suspect]
     Active Substance: INFLIXIMAB
     Dosage: 800 MG, IV,  0 WEEKS, THEN 2 WEEKS, THEN 6 WEEKS.
     Route: 042
     Dates: start: 20210507
  3. INFLIXIMAB [Concomitant]
     Active Substance: INFLIXIMAB
     Indication: Crohn^s disease
     Dosage: 5 MG/KG
     Route: 042
     Dates: start: 201811
  4. AZATHIOPRINE [Concomitant]
     Active Substance: AZATHIOPRINE
     Indication: Crohn^s disease
     Dosage: 150 MG
     Route: 048

REACTIONS (4)
  - Abscess drainage [Unknown]
  - Rectal abscess [Unknown]
  - Drug level below therapeutic [Unknown]
  - Overdose [Unknown]

NARRATIVE: CASE EVENT DATE: 20210421
